FAERS Safety Report 7439922-6 (Version None)
Quarter: 2011Q2

REPORT INFORMATION
  Report Type: 
  Country: None (occurrence: None)
  Receive Date: 20110427
  Receipt Date: 20110419
  Transmission Date: 20111010
  Serious: Yes (Hospitalization)
  Sender: FDA-Public Use
  Company Number: JP-SANOFI-AVENTIS-2011SA024501

PATIENT
  Age: 32 Year
  Sex: Male
  Weight: 88 kg

DRUGS (9)
  1. ASPIRIN [Concomitant]
     Route: 048
     Dates: start: 20091229
  2. PROMAC /JPN/ [Concomitant]
     Route: 048
     Dates: start: 20091229
  3. PLAVIX [Suspect]
     Route: 048
     Dates: start: 20091229
  4. PLAVIX [Suspect]
     Route: 048
     Dates: start: 20091228, end: 20091228
  5. CRESTOR [Concomitant]
     Route: 048
     Dates: start: 20091228, end: 20100104
  6. CRESTOR [Concomitant]
     Route: 048
     Dates: start: 20100105, end: 20100108
  7. ASPIRIN [Concomitant]
     Route: 048
     Dates: start: 20091228, end: 20091228
  8. CRESTOR [Concomitant]
     Route: 048
     Dates: start: 20100109
  9. ITOROL [Concomitant]
     Route: 048
     Dates: start: 20100420

REACTIONS (1)
  - IN-STENT CORONARY ARTERY RESTENOSIS [None]
